FAERS Safety Report 24163306 (Version 1)
Quarter: 2024Q3

REPORT INFORMATION
  Report Type: Spontaneous
  Country: ES (occurrence: ES)
  Receive Date: 20240801
  Receipt Date: 20240801
  Transmission Date: 20241016
  Serious: Yes (Other)
  Sender: FRESENIUS KABI
  Company Number: ES-ROTOP-MAG-20240619-V

PATIENT
  Age: 2 Year
  Sex: Male

DRUGS (3)
  1. FUROSEMIDE [Suspect]
     Active Substance: FUROSEMIDE
     Indication: Renal scan
     Dates: start: 20240503, end: 20240503
  2. TECHNETIUM TC 99M MERTIATIDE [Suspect]
     Active Substance: BETIATIDE
     Indication: Renal scan
     Dosage: EQUIVALENT OF 35.779 MBQ?KIT FOR RADIOPHARMACEUTICAL PREPARATION
     Route: 042
     Dates: start: 20240503, end: 20240503
  3. Ultra-Technekow? [Concomitant]
     Indication: Product used for unknown indication
     Dates: start: 20240503, end: 20240503

REACTIONS (1)
  - Urticaria [Recovered/Resolved]

NARRATIVE: CASE EVENT DATE: 20240503
